FAERS Safety Report 8537434-X (Version None)
Quarter: 2012Q3

REPORT INFORMATION
  Report Type: 
  Country: None (occurrence: None)
  Receive Date: 20120725
  Receipt Date: 20120716
  Transmission Date: 20120928
  Serious: Yes (Hospitalization, Other)
  Sender: FDA-Public Use
  Company Number: FR-PFIZER INC-2012089840

PATIENT
  Age: 58 Year
  Sex: Female

DRUGS (17)
  1. ACTONEL [Suspect]
     Dosage: UNK
     Dates: start: 20100101, end: 20120315
  2. FELODIPINE [Concomitant]
  3. PREDNISONE TAB [Concomitant]
  4. SULFARLEM [Concomitant]
  5. VOLTAREN EMULGEL ^NOVARTIS^ [Concomitant]
  6. AMITRIPTYLINE HYDROCHLORIDE [Suspect]
     Indication: DEPRESSION
     Dosage: 40MG/ML
     Dates: end: 20120303
  7. LYRICA [Suspect]
     Indication: PAIN
     Dosage: 125 MG, UNK
     Route: 048
     Dates: start: 20100101, end: 20120315
  8. FOLIC ACID [Concomitant]
  9. MABTHERA [Suspect]
     Indication: RHEUMATOID ARTHRITIS
     Dosage: UNK
     Dates: start: 20091001, end: 20111001
  10. VALSARTAN [Concomitant]
  11. METHOTREXATE SODIUM [Suspect]
     Indication: RHEUMATOID ARTHRITIS
     Dosage: 20 MG, WEEKLY
     Route: 058
     Dates: start: 19970101, end: 20120315
  12. ESCITALOPRAM [Concomitant]
     Indication: DEPRESSION
     Dosage: UNK
     Dates: start: 20120302, end: 20120315
  13. ACETAMINOPHEN [Concomitant]
  14. ENBREL [Suspect]
     Indication: RHEUMATOID ARTHRITIS
     Dosage: 50 MG, WEEKLY
     Route: 058
     Dates: start: 20111018, end: 20120303
  15. NEXIUM [Suspect]
     Dosage: UNK
     Dates: start: 20100101, end: 20120315
  16. XANAX [Concomitant]
     Dosage: UNK
     Dates: start: 20120317
  17. ZOLPIDEM TARTRATE [Concomitant]

REACTIONS (6)
  - HEADACHE [None]
  - BONE MARROW FAILURE [None]
  - CHILLS [None]
  - ASTHENIA [None]
  - AGRANULOCYTOSIS [None]
  - OEDEMA PERIPHERAL [None]
